FAERS Safety Report 5747246-8 (Version None)
Quarter: 2008Q2

REPORT INFORMATION
  Report Type: 
  Country: None (occurrence: None)
  Receive Date: 20080520
  Receipt Date: 20080508
  Transmission Date: 20081010
  Serious: Yes (Hospitalization)
  Sender: FDA-Public Use
  Company Number: 2008-176454-NL

PATIENT
  Age: 18 Year
  Sex: Female

DRUGS (2)
  1. ETONOGESTREL [Suspect]
     Indication: CONTRACEPTION
     Dosage: DF
  2. LYMECYCLINE [Suspect]
     Indication: ACNE
     Dosage: DF
     Dates: start: 20080101

REACTIONS (1)
  - BENIGN INTRACRANIAL HYPERTENSION [None]
